FAERS Safety Report 7718460-7 (Version None)
Quarter: 2011Q3

REPORT INFORMATION
  Report Type: 
  Country: None (occurrence: None)
  Receive Date: 20110830
  Receipt Date: 20110827
  Transmission Date: 20111222
  Serious: Yes (Death)
  Sender: FDA-Public Use
  Company Number: PHHY2011BR76693

PATIENT
  Sex: Male

DRUGS (2)
  1. TRILEPTAL [Suspect]
     Dosage: 600 MG, UNK
  2. TRILEPTAL [Suspect]
     Dosage: 300 MG, UNK

REACTIONS (1)
  - DEATH [None]
